FAERS Safety Report 7816870-0 (Version None)
Quarter: 2011Q4

REPORT INFORMATION
  Report Type: 
  Country: None (occurrence: None)
  Receive Date: 20111013
  Receipt Date: 20110930
  Transmission Date: 20120403
  Serious: Yes (Hospitalization)
  Sender: FDA-Public Use
  Company Number: 2011AM005476

PATIENT
  Sex: Male

DRUGS (1)
  1. SYMLIN [Suspect]
     Indication: PRODUCT USED FOR UNKNOWN INDICATION
     Dosage: 60 MCG;TID;SC
     Route: 058

REACTIONS (4)
  - FALL [None]
  - NAUSEA [None]
  - BLOOD GLUCOSE DECREASED [None]
  - APHAGIA [None]
